FAERS Safety Report 6386660-7 (Version None)
Quarter: 2009Q4

REPORT INFORMATION
  Report Type: 
  Country: None (occurrence: None)
  Receive Date: 20091002
  Receipt Date: 20090921
  Transmission Date: 20100525
  Serious: Yes (Other)
  Sender: FDA-Public Use
  Company Number: TR-ROCHE-658068

PATIENT
  Age: 54 Year
  Sex: Female

DRUGS (5)
  1. RIBAVIRIN [Suspect]
     Route: 065
     Dates: start: 20070501
  2. RIBAVIRIN [Suspect]
     Route: 065
  3. PEG-INTERFERON A-2A (RO 25-8310) [Suspect]
     Route: 065
  4. PEG-INTERFERON ALPHA 2B [Suspect]
     Route: 065
     Dates: start: 20070501
  5. LEVOTHYROXINE SODIUM [Concomitant]
     Indication: HYPOTHYROIDISM
     Route: 048

REACTIONS (7)
  - DISEASE RECURRENCE [None]
  - EAR PAIN [None]
  - FACIAL PALSY [None]
  - HEPATIC FIBROSIS [None]
  - HEPATITIS C [None]
  - HYPOTHYROIDISM [None]
  - NEUROTOXICITY [None]
